FAERS Safety Report 9730944 (Version 4)
Quarter: 2014Q1

REPORT INFORMATION
  Report Type: Spontaneous
  Country: KR (occurrence: KR)
  Receive Date: 20131205
  Receipt Date: 20140109
  Transmission Date: 20141002
  Serious: Yes (Other)
  Sender: FDA-Public Use
  Company Number: KR-ROCHE-1302924

PATIENT
  Age: 79 Year
  Sex: Female

DRUGS (6)
  1. LUCENTIS [Suspect]
     Indication: AGE-RELATED MACULAR DEGENERATION
     Dosage: TOTAL 3 RANIBIZUMAB INJECTIONS WERE RECEIVED
     Route: 050
  2. LUCENTIS [Suspect]
     Dosage: REGIMEN:2
     Route: 050
     Dates: start: 20100218
  3. LUCENTIS [Suspect]
     Dosage: EGIMEN: 3 IN LEFT EYE.
     Route: 050
     Dates: start: 20100218
  4. ALCAINE [Concomitant]
  5. OCUFLOX [Concomitant]
  6. POVIDONE IODINE [Concomitant]

REACTIONS (2)
  - Retinal pigment epithelial tear [Unknown]
  - Retinal oedema [Unknown]
